FAERS Safety Report 5372416-0 (Version None)
Quarter: 2007Q2

REPORT INFORMATION
  Report Type: 
  Country: None (occurrence: None)
  Receive Date: 20070627
  Receipt Date: 20070329
  Transmission Date: 20071010
  Serious: No
  Sender: FDA-Public Use
  Company Number: US-BRISTOL-MYERS SQUIBB COMPANY-13731609

PATIENT
  Sex: Male
  Weight: 86 kg

DRUGS (4)
  1. SPRYCEL [Suspect]
     Indication: ACUTE LYMPHOCYTIC LEUKAEMIA
     Dates: start: 20070215
  2. PROGRAF [Concomitant]
  3. ZOLOFT [Concomitant]
  4. GLEEVEC [Concomitant]

REACTIONS (2)
  - MYALGIA [None]
  - PHOTOPHOBIA [None]
